FAERS Safety Report 8420963-7 (Version None)
Quarter: 2012Q2

REPORT INFORMATION
  Report Type: 
  Country: None (occurrence: None)
  Receive Date: 20120608
  Receipt Date: 20120605
  Transmission Date: 20120825
  Serious: Yes (Other)
  Sender: FDA-Public Use
  Company Number: ES-PFIZER INC-2012108716

PATIENT
  Age: 30 Year
  Sex: Male
  Weight: 80 kg

DRUGS (7)
  1. TRAZODONE HCL [Concomitant]
     Dosage: UNK
     Dates: start: 20110101
  2. LANTANON [Concomitant]
     Indication: ANXIETY DISORDER
     Dosage: UNK
     Route: 048
     Dates: end: 20110101
  3. ESCITALOPRAM [Concomitant]
     Indication: ANXIETY DISORDER
     Dosage: 10 MG, UNK
     Route: 048
     Dates: start: 20110101
  4. LYRICA [Suspect]
     Indication: ANXIETY DISORDER
     Dosage: 75 MG, 1X/DAY
     Route: 048
     Dates: start: 20100701, end: 20100901
  5. LEXATIN [Concomitant]
     Indication: ANXIETY DISORDER
     Dosage: UNK
     Route: 048
  6. LYRICA [Suspect]
     Dosage: 75 MG, 1X/DAY
     Route: 048
     Dates: start: 20110201, end: 20110501
  7. LYRICA [Suspect]
     Dosage: 150 MG, 1X/DAY
     Route: 048
     Dates: start: 20100901, end: 20110201

REACTIONS (1)
  - BREAST MASS [None]
